FAERS Safety Report 17483850 (Version 1)
Quarter: 2020Q3

REPORT INFORMATION
  Report Type: Spontaneous
  Country: US (occurrence: US)
  Receive Date: 20200301
  Receipt Date: 20200301
  Transmission Date: 20201104
  Serious: Yes (Other)
  Sender: FDA-Public Use
  Company Number: None

PATIENT
  Age: 91 Year
  Sex: Female
  Weight: 65.25 kg

DRUGS (1)
  1. BROLUCIZUMAB. [Suspect]
     Active Substance: BROLUCIZUMAB
     Indication: NEOVASCULAR AGE-RELATED MACULAR DEGENERATION
     Dosage: ?          OTHER FREQUENCY:ONCE;?
     Route: 031
     Dates: start: 20200206, end: 20200206

REACTIONS (1)
  - Retinal vasculitis [None]

NARRATIVE: CASE EVENT DATE: 20200209
